FAERS Safety Report 7034450-4 (Version None)
Quarter: 2010Q4

REPORT INFORMATION
  Report Type: 
  Country: None (occurrence: None)
  Receive Date: 20101008
  Receipt Date: 20101004
  Transmission Date: 20110411
  Serious: Yes (Death, Hospitalization)
  Sender: FDA-Public Use
  Company Number: PHFR2010GB04448

PATIENT
  Sex: Female

DRUGS (4)
  1. CLOZARIL [Suspect]
     Indication: SCHIZOPHRENIA
     Dosage: 550 MG, QD
     Route: 048
     Dates: start: 20040301
  2. NULYTELY [Concomitant]
     Dosage: 2 DF, BID
  3. SENNA [Concomitant]
     Dosage: 2 DF, QD
  4. DIAZEPAM [Concomitant]
     Dosage: 5 MG, PRN

REACTIONS (5)
  - ABDOMINAL PAIN UPPER [None]
  - CONSTIPATION [None]
  - DEATH [None]
  - MALAISE [None]
  - MENTAL DISORDER [None]
